FAERS Safety Report 17498003 (Version 2)
Quarter: 2020Q3

REPORT INFORMATION
  Report Type: Spontaneous
  Country: US (occurrence: US)
  Receive Date: 20200304
  Receipt Date: 20200707
  Transmission Date: 20201102
  Serious: No
  Sender: FDA-Public Use
  Company Number: NVSC2020US062386

PATIENT
  Sex: Female

DRUGS (4)
  1. ONDANSETRON [Suspect]
     Active Substance: ONDANSETRON
     Indication: MORNING SICKNESS
     Dosage: 4 MG, Q8H, PRN
     Route: 048
     Dates: start: 20130806, end: 20140223
  2. ZOFRAN ODT [Suspect]
     Active Substance: ONDANSETRON HYDROCHLORIDE
     Indication: PRODUCT USED FOR UNKNOWN INDICATION
     Route: 048
  3. ZOFRAN [Suspect]
     Active Substance: ONDANSETRON HYDROCHLORIDE
     Indication: PRODUCT USED FOR UNKNOWN INDICATION
     Dosage: 4 MG
     Route: 065
     Dates: start: 20130806, end: 20140323
  4. ONDANSETRON. [Suspect]
     Active Substance: ONDANSETRON
     Indication: MORNING SICKNESS
     Dosage: 4 MG, Q8H, PRN
     Route: 048
     Dates: start: 20130823, end: 20130922

REACTIONS (4)
  - Emotional distress [Unknown]
  - Anxiety [Unknown]
  - Product use issue [Unknown]
  - Maternal exposure during pregnancy [Unknown]
